FAERS Safety Report 6162403-7 (Version None)
Quarter: 2009Q2

REPORT INFORMATION
  Report Type: 
  Country: None (occurrence: None)
  Receive Date: 20090421
  Receipt Date: 20090409
  Transmission Date: 20091009
  Serious: Yes (Other)
  Sender: FDA-Public Use
  Company Number: CN-PFIZER INC-2009188600

PATIENT

DRUGS (3)
  1. VFEND [Suspect]
     Indication: FUNGAL INFECTION
     Dosage: 200 MG, 2X/DAY
     Route: 042
     Dates: start: 20090301, end: 20090301
  2. MEROPENEM [Concomitant]
  3. VANCOMYCIN [Concomitant]

REACTIONS (2)
  - HYSTERICAL PSYCHOSIS [None]
  - VISUAL IMPAIRMENT [None]
